FAERS Safety Report 8876554 (Version 1)
Quarter: 2012Q4

REPORT INFORMATION
  Report Type: 
  Country: US (occurrence: US)
  Receive Date: 20121023
  Receipt Date: 20121023
  Transmission Date: 20130627
  Serious: Yes (Hospitalization)
  Sender: FDA-Public Use
  Company Number: US-ASTELLAS-2012US003344

PATIENT
  Age: 69 Year
  Sex: Female
  Weight: 88 kg

DRUGS (7)
  1. PROGRAF [Suspect]
     Indication: LIVER TRANSPLANT
     Dosage: 1 mg, bid
     Route: 048
     Dates: start: 20081226
  2. RAPAMUNE [Concomitant]
     Indication: IMMUNOSUPPRESSANT DRUG THERAPY
     Dosage: 2 mg, Unknown/D
     Route: 048
     Dates: start: 20110224
  3. PRILOSEC [Concomitant]
     Indication: GASTROINTESTINAL DISORDER THERAPY
     Dosage: 40 mg, UID/QD
     Route: 048
     Dates: start: 20090625
  4. URSODIOL [Concomitant]
     Indication: GASTROINTESTINAL DISORDER THERAPY
     Dosage: 500 mg, bid
     Route: 048
     Dates: start: 20120201
  5. CALTRATE WITH VITAMIN D [Concomitant]
     Indication: VITAMIN SUPPLEMENTATION
     Dosage: 500 mg, tid
     Route: 048
     Dates: start: 20101026
  6. ASPIRIN [Concomitant]
     Indication: ANTIPLATELET THERAPY
     Dosage: 325 mEq, UID/QD
     Route: 048
     Dates: start: 20120329
  7. BENADRYL [Concomitant]
     Indication: ANTIALLERGIC THERAPY
     Dosage: 25 mg, prn
     Route: 048
     Dates: start: 20090925

REACTIONS (1)
  - Urinary tract infection [Unknown]
